FAERS Safety Report 5145866-5 (Version None)
Quarter: 2006Q4

REPORT INFORMATION
  Report Type: 
  Country: None (occurrence: None)
  Receive Date: 20061101
  Receipt Date: 20061020
  Transmission Date: 20070319
  Serious: Yes (Other)
  Sender: FDA-Public Use
  Company Number: 15022

PATIENT
  Age: 58 Year
  Sex: Male

DRUGS (6)
  1. METHOTREXATE [Suspect]
     Indication: CENTRAL NERVOUS SYSTEM LYMPHOMA
     Dosage: 8 G/M2 PER_CYCLE
  2. METHOTREXATE [Suspect]
     Indication: CENTRAL NERVOUS SYSTEM LYMPHOMA
     Dosage: 8 G/M2 PER_CYCLE
  3. LEUCOVORIN CALCIUM [Concomitant]
  4. PANTOPRAZOLE SODIUM [Concomitant]
  5. SCOPOLAMINE [Concomitant]
  6. DEXAMETHASONE TAB [Concomitant]

REACTIONS (3)
  - BLOOD GLUCOSE INCREASED [None]
  - RENAL FAILURE [None]
  - RENAL TUBULAR NECROSIS [None]
